FAERS Safety Report 7491882-8 (Version None)
Quarter: 2011Q1

REPORT INFORMATION
  Report Type: 
  Country: None (occurrence: None)
  Receive Date: 20110318
  Receipt Date: 20100831
  Transmission Date: 20110831
  Serious: Yes (Other)
  Sender: FDA-Public Use
  Company Number: 2-0810-68

PATIENT
  Age: 36 Year
  Sex: Female

DRUGS (5)
  1. COCONUT OIL [Concomitant]
  2. DERMA-SMOOTHE/FS [Suspect]
     Indication: ALOPECIA
     Dosage: TOPICAL
     Route: 061
  3. AVENO LOTION [Concomitant]
  4. DOVE SOAP [Concomitant]
  5. DOVE DEODORANT [Concomitant]

REACTIONS (1)
  - RASH [None]
